FAERS Safety Report 10333201 (Version 1)
Quarter: 2014Q3

REPORT INFORMATION
  Report Type: Spontaneous
  Country: GB (occurrence: GB)
  Receive Date: 20140722
  Receipt Date: 20140722
  Transmission Date: 20150326
  Serious: Yes (Other)
  Sender: FDA-Public Use
  Company Number: GB-GILEAD-2014-0109256

PATIENT
  Age: 24 Year
  Sex: Male

DRUGS (2)
  1. MULTIVITAMIN                       /02160401/ [Concomitant]
  2. STRIBILD [Suspect]
     Active Substance: COBICISTAT\ELVITEGRAVIR\EMTRICITABINE\TENOFOVIR DISOPROXIL FUMARATE
     Indication: HIV TEST POSITIVE
     Dosage: ONE TABLET, ONCE  DAILY
     Route: 048
     Dates: start: 20140409, end: 20140709

REACTIONS (5)
  - Agitation [Recovering/Resolving]
  - Depressed mood [Recovering/Resolving]
  - Abnormal dreams [Recovering/Resolving]
  - Muscular weakness [Not Recovered/Not Resolved]
  - Fatigue [Not Recovered/Not Resolved]

NARRATIVE: CASE EVENT DATE: 20140409
